FAERS Safety Report 4416511-9 (Version None)
Quarter: 2004Q3

REPORT INFORMATION
  Report Type: 
  Country: None (occurrence: None)
  Receive Date: 20040802
  Receipt Date: 20040719
  Transmission Date: 20050211
  Serious: Yes (Death, Other)
  Sender: FDA-Public Use
  Company Number: 2004049235

PATIENT
  Age: 94 Year
  Sex: Female

DRUGS (1)
  1. NEURONTIN [Suspect]
     Indication: POST HERPETIC NEURALGIA
     Dosage: (300 MG), INTRAVENOUS
     Route: 042

REACTIONS (7)
  - ATRIAL FIBRILLATION [None]
  - BRONCHITIS [None]
  - CARDIAC FAILURE [None]
  - COLON CANCER [None]
  - DISEASE RECURRENCE [None]
  - INTESTINAL OBSTRUCTION [None]
  - SOMNOLENCE [None]
